FAERS Safety Report 20433976 (Version 7)
Quarter: 2024Q1

REPORT INFORMATION
  Report Type: Other
  Country: CA (occurrence: None)
  Receive Date: 20220205
  Receipt Date: 20240319
  Transmission Date: 20240409
  Serious: No
  Sender: FDA-Public Use
  Company Number: CA-ROCHE-3009889

PATIENT
  Age: 44 Year
  Sex: Male

DRUGS (7)
  1. OCREVUS [Suspect]
     Active Substance: OCRELIZUMAB
     Indication: Relapsing-remitting multiple sclerosis
     Dosage: THEN 600 MG EVERY 6 MONTHS
     Route: 042
     Dates: start: 20160101
  2. ADVIL [Suspect]
     Active Substance: IBUPROFEN
     Indication: Cough
     Route: 065
  3. CETIRIZINE HYDROCHLORIDE [Concomitant]
     Active Substance: CETIRIZINE HYDROCHLORIDE
  4. DOXYCYCLINE [Concomitant]
     Active Substance: DOXYCYCLINE
  5. PEPCID [Concomitant]
     Active Substance: FAMOTIDINE
  6. SYMBICORT [Concomitant]
     Active Substance: BUDESONIDE\FORMOTEROL FUMARATE DIHYDRATE
  7. ONDANSETRON [Concomitant]
     Active Substance: ONDANSETRON

REACTIONS (22)
  - Drug ineffective [Unknown]
  - Oropharyngeal pain [Recovering/Resolving]
  - Pyrexia [Recovered/Resolved]
  - Pain [Recovered/Resolved]
  - Decreased appetite [Unknown]
  - Rhinorrhoea [Recovering/Resolving]
  - Headache [Recovering/Resolving]
  - Chills [Not Recovered/Not Resolved]
  - Fatigue [Recovering/Resolving]
  - Nausea [Recovering/Resolving]
  - Back pain [Recovering/Resolving]
  - COVID-19 [Not Recovered/Not Resolved]
  - Weight decreased [Recovered/Resolved]
  - Haemoglobin decreased [Unknown]
  - Monocyte count increased [Unknown]
  - Serum ferritin increased [Unknown]
  - Blood creatine phosphokinase increased [Unknown]
  - C-reactive protein increased [Unknown]
  - Lymphocyte count decreased [Unknown]
  - Gastrooesophageal reflux disease [Recovered/Resolved]
  - Cough [Recovered/Resolved]
  - Schistosomiasis cutaneous [Unknown]

NARRATIVE: CASE EVENT DATE: 20220118
